FAERS Safety Report 6150203-3 (Version None)
Quarter: 2009Q2

REPORT INFORMATION
  Report Type: 
  Country: None (occurrence: None)
  Receive Date: 20090409
  Receipt Date: 20090401
  Transmission Date: 20091009
  Serious: Yes (Other)
  Sender: FDA-Public Use
  Company Number: US-BAYER-200838133NA

PATIENT
  Age: 31 Year
  Sex: Female

DRUGS (4)
  1. BETASERON [Suspect]
     Indication: MULTIPLE SCLEROSIS
     Dosage: TOTAL DAILY DOSE: 8 MIU
     Route: 058
     Dates: start: 20061101, end: 20080425
  2. BETASERON [Suspect]
     Dosage: TOTAL DAILY DOSE: 8 MIU
     Route: 058
     Dates: start: 20080729
  3. EXTRA STRENGTH TYLENOL [Concomitant]
  4. LEVOTHYROXINE SODIUM [Concomitant]

REACTIONS (9)
  - ABORTION SPONTANEOUS [None]
  - CHILLS [None]
  - CONTUSION [None]
  - HYPERHIDROSIS [None]
  - INFLUENZA LIKE ILLNESS [None]
  - PAIN [None]
  - PYREXIA [None]
  - TREMOR [None]
  - VAGINAL HAEMORRHAGE [None]
